FAERS Safety Report 17942266 (Version 1)
Quarter: 2020Q2

REPORT INFORMATION
  Report Type: Report from Study
  Country: BR (occurrence: BR)
  Receive Date: 20200624
  Receipt Date: 20200624
  Transmission Date: 20200714
  Serious: Yes (Other)
  Sender: FDA-Public Use
  Company Number: NVSC2020BR173719

PATIENT
  Sex: Female

DRUGS (1)
  1. FULVESTRANT. [Suspect]
     Active Substance: FULVESTRANT
     Indication: BREAST CANCER
     Dosage: UNK
     Route: 030
     Dates: start: 201907

REACTIONS (7)
  - Pain [Not Recovered/Not Resolved]
  - Rib fracture [Unknown]
  - Bone disorder [Not Recovered/Not Resolved]
  - Metastases to bone [Not Recovered/Not Resolved]
  - Eating disorder [Recovering/Resolving]
  - Dry mouth [Recovered/Resolved]
  - Oral contusion [Recovered/Resolved]

NARRATIVE: CASE EVENT DATE: 2019
